FAERS Safety Report 8051251-9 (Version None)
Quarter: 2012Q1

REPORT INFORMATION
  Report Type: 
  Country: None (occurrence: None)
  Receive Date: 20120117
  Receipt Date: 20120104
  Transmission Date: 20120608
  Serious: Yes (Death, Hospitalization)
  Sender: FDA-Public Use
  Company Number: US-MUTUAL PHARMACEUTICAL COMPANY, INC.-CLHC20120004

PATIENT
  Age: 50 Year
  Sex: Male

DRUGS (2)
  1. COLCHICINE [Suspect]
     Indication: PRODUCT USED FOR UNKNOWN INDICATION
     Route: 048
     Dates: end: 20100101
  2. ALPRAZOLAM [Suspect]
     Indication: PRODUCT USED FOR UNKNOWN INDICATION
     Route: 048
     Dates: end: 20100101

REACTIONS (17)
  - BLOOD BICARBONATE DECREASED [None]
  - COMPLETED SUICIDE [None]
  - CONFUSIONAL STATE [None]
  - TACHYPNOEA [None]
  - TACHYCARDIA [None]
  - HAEMORRHAGE [None]
  - BLOOD CREATININE INCREASED [None]
  - ATAXIA [None]
  - BLOOD CREATINE PHOSPHOKINASE INCREASED [None]
  - ASPARTATE AMINOTRANSFERASE INCREASED [None]
  - BLOOD PRESSURE DECREASED [None]
  - BLOOD UREA INCREASED [None]
  - MENTAL STATUS CHANGES [None]
  - URINE OUTPUT DECREASED [None]
  - GASTROINTESTINAL SOUNDS ABNORMAL [None]
  - BLOOD GLUCOSE INCREASED [None]
  - PLATELET COUNT DECREASED [None]
